FAERS Safety Report 6335728-X (Version None)
Quarter: 2009Q3

REPORT INFORMATION
  Report Type: 
  Country: None (occurrence: None)
  Receive Date: 20090831
  Receipt Date: 20090819
  Transmission Date: 20100115
  Serious: Yes (Death)
  Sender: FDA-Public Use
  Company Number: US-GENENTECH-249106

PATIENT
  Sex: Female
  Weight: 62.4 kg

DRUGS (9)
  1. BEVACIZUMAB [Suspect]
     Indication: SMALL CELL LUNG CANCER STAGE UNSPECIFIED
     Dosage: 945 MG, Q3W
     Route: 042
     Dates: start: 20070924, end: 20070924
  2. CARBOPLATIN [Concomitant]
     Indication: DRUG USE FOR UNKNOWN INDICATION
     Dosage: 410 MG, UNK
     Route: 042
     Dates: start: 20070924, end: 20070924
  3. VP-16 [Concomitant]
     Indication: DRUG USE FOR UNKNOWN INDICATION
     Dosage: 160 MG, UNK
     Route: 042
     Dates: start: 20070924, end: 20070926
  4. XANAX [Concomitant]
     Indication: ANXIETY
     Dosage: 0.25 MG, BID
  5. KLONOPIN [Concomitant]
     Indication: ANXIETY
     Dosage: 1 MG, BID
  6. LACTULOSE [Concomitant]
     Indication: DRUG USE FOR UNKNOWN INDICATION
     Dosage: 1 UNK, PRN
  7. COMPAZINE [Concomitant]
     Indication: NAUSEA
     Dosage: UNK, PRN
  8. PHENERGAN [Concomitant]
     Indication: NAUSEA
     Dosage: UNK, PRN
  9. SENOKOT [Concomitant]
     Indication: DRUG USE FOR UNKNOWN INDICATION
     Dosage: UNK, PRN

REACTIONS (1)
  - LUNG NEOPLASM MALIGNANT [None]
